FAERS Safety Report 6596407-7 (Version None)
Quarter: 2010Q1

REPORT INFORMATION
  Report Type: 
  Country: None (occurrence: None)
  Receive Date: 20100222
  Receipt Date: 20100222
  Transmission Date: 20100710
  Serious: Yes (Life-Threatening, Hospitalization, Disabling)
  Sender: FDA-Public Use
  Company Number: None

PATIENT
  Sex: Male
  Weight: 61.8 kg

DRUGS (23)
  1. VIDEX [Suspect]
     Indication: ACQUIRED IMMUNODEFICIENCY SYNDROME
     Dosage: 250 MG QD ORAL
     Route: 048
     Dates: start: 20031006, end: 20050427
  2. VIDEX EC [Suspect]
     Dosage: 400 MG QD ORAL
     Route: 048
     Dates: start: 20050427, end: 20070815
  3. SUSTIVA [Concomitant]
  4. COMBIVIR [Concomitant]
  5. REYATAZ [Concomitant]
  6. NORVIR [Concomitant]
  7. VIREAD [Concomitant]
  8. LEXIVA [Concomitant]
  9. EPZICOM [Concomitant]
  10. BACTRIM DS [Concomitant]
  11. IMITREX [Concomitant]
  12. DOXYXYCLINE [Concomitant]
  13. CELEXA [Concomitant]
  14. TRAZODONE [Concomitant]
  15. BUSPAR [Concomitant]
  16. HALDOL [Concomitant]
  17. BENZTROPINE MESYLATE [Concomitant]
  18. DEPAKOTE SR [Concomitant]
  19. WELLBUTRIN [Concomitant]
  20. ALDARA [Concomitant]
  21. FLUCONAZOLE [Concomitant]
  22. PROPRAANOLOL [Concomitant]
  23. IRON SULFATETHIAMIN COMPOUND TAB [Concomitant]

REACTIONS (3)
  - DISEASE RECURRENCE [None]
  - LIVER DISORDER [None]
  - OESOPHAGEAL VARICES HAEMORRHAGE [None]
